FAERS Safety Report 9742689 (Version 2)
Quarter: 2015Q3

REPORT INFORMATION
  Report Type: Spontaneous
  Country: US (occurrence: US)
  Receive Date: 20131210
  Receipt Date: 20150805
  Transmission Date: 20151125
  Serious: No
  Sender: FDA-Public Use
  Company Number: US-GILEAD-2009-0025651

PATIENT
  Age: 54 Year
  Sex: Male
  Weight: 122.47 kg

DRUGS (9)
  1. ASPIRIN. [Concomitant]
     Active Substance: ASPIRIN
  2. BUMEX [Concomitant]
     Active Substance: BUMETANIDE
  3. WARFARIN [Concomitant]
     Active Substance: WARFARIN
  4. CLONIDINE. [Concomitant]
     Active Substance: CLONIDINE
  5. POTASSIUM CHLORIDE. [Concomitant]
     Active Substance: POTASSIUM CHLORIDE
  6. METOLAZONE. [Concomitant]
     Active Substance: METOLAZONE
  7. VERAPAMIL [Concomitant]
     Active Substance: VERAPAMIL HYDROCHLORIDE
  8. NORCO [Concomitant]
     Active Substance: ACETAMINOPHEN\HYDROCODONE BITARTRATE
  9. LETAIRIS [Suspect]
     Active Substance: AMBRISENTAN
     Indication: PULMONARY ARTERIAL HYPERTENSION
     Route: 048
     Dates: start: 20091005

REACTIONS (2)
  - Nasal congestion [Unknown]
  - Epistaxis [Unknown]
